FAERS Safety Report 6895989-5 (Version None)
Quarter: 2010Q3

REPORT INFORMATION
  Report Type: 
  Country: None (occurrence: None)
  Receive Date: 20100802
  Receipt Date: 20100723
  Transmission Date: 20110219
  Serious: Yes (Hospitalization, Other)
  Sender: FDA-Public Use
  Company Number: BE-ABBOTT-10P-013-0646131-00

PATIENT
  Sex: Female

DRUGS (2)
  1. HUMIRA [Suspect]
     Indication: RHEUMATOID ARTHRITIS
     Dates: start: 20081110, end: 20091031
  2. HUMIRA [Suspect]

REACTIONS (6)
  - ECZEMA [None]
  - EYE PAIN [None]
  - HEADACHE [None]
  - KNEE ARTHROPLASTY [None]
  - LIP SWELLING [None]
  - VERTIGO [None]
